FAERS Safety Report 4281338-8 (Version None)
Quarter: 2004Q1

REPORT INFORMATION
  Report Type: 
  Country: None (occurrence: None)
  Receive Date: 20040129
  Receipt Date: 20040118
  Transmission Date: 20041129
  Serious: Yes (Other)
  Sender: FDA-Public Use
  Company Number: GB-ROCHE-356288

PATIENT
  Age: 67 Year
  Sex: Male
  Weight: 101.6 kg

DRUGS (3)
  1. XENICAL [Suspect]
     Indication: DRUG USE FOR UNKNOWN INDICATION
     Route: 048
     Dates: start: 20040102
  2. GLUCOBAY [Interacting]
     Route: 065
  3. GLUCOBAY [Interacting]
     Route: 065

REACTIONS (2)
  - DRUG INTERACTION [None]
  - HYPOGLYCAEMIA [None]
